FAERS Safety Report 4355405-4 (Version None)
Quarter: 2004Q2

REPORT INFORMATION
  Report Type: 
  Country: None (occurrence: None)
  Receive Date: 20040504
  Receipt Date: 20030604
  Transmission Date: 20050107
  Serious: Yes (Hospitalization)
  Sender: FDA-Public Use
  Company Number: 200300966

PATIENT
  Age: 50 Year
  Sex: Female

DRUGS (3)
  1. IMODIUM [Suspect]
     Indication: GASTROINTESTINAL DISORDER
     Dosage: 4 MG ONCE PO
     Route: 048
     Dates: start: 20030521, end: 20030521
  2. ERCEFURYL (NIFUROXAZIDE) [Suspect]
     Indication: DIARRHOEA
     Dosage: 2 CAPSULES PO
     Route: 048
     Dates: start: 20030521, end: 20030521
  3. SAVARINE (SAVARINE) [Suspect]
     Indication: MALARIA PROPHYLAXIS
     Dosage: PO
     Route: 048
     Dates: start: 20030430, end: 20030521

REACTIONS (1)
  - ANGIONEUROTIC OEDEMA [None]
